FAERS Safety Report 19517812 (Version 4)
Quarter: 2022Q2

REPORT INFORMATION
  Report Type: Spontaneous
  Country: CA (occurrence: CA)
  Receive Date: 20210712
  Receipt Date: 20220414
  Transmission Date: 20220721
  Serious: Yes (Other)
  Sender: FDA-Public Use
  Company Number: CA-CELLTRION INC.-2021CA009332

PATIENT

DRUGS (11)
  1. INFLECTRA [Suspect]
     Active Substance: INFLIXIMAB-DYYB
     Indication: Colitis ulcerative
     Dosage: 10MG/KG WEEK 0 AND 2, THEN 5MG/KG WEEK 6, THEN EVERY 8 WEEKS
     Route: 042
     Dates: start: 20190919
  2. INFLECTRA [Suspect]
     Active Substance: INFLIXIMAB-DYYB
     Dosage: 10MG/KG WEEK 0 AND 2, THEN 5MG/KG WEEK 6, THEN EVERY 8 WEEKS
     Route: 042
     Dates: start: 20210507
  3. INFLECTRA [Suspect]
     Active Substance: INFLIXIMAB-DYYB
     Dosage: 10MG/KG WEEK 0 AND 2, THEN 5MG/KG WEEK 6, THEN EVERY 8 WEEKS
     Route: 042
     Dates: start: 20210507
  4. INFLECTRA [Suspect]
     Active Substance: INFLIXIMAB-DYYB
     Dosage: 10MG/KG WEEK 0 AND 2, THEN 5MG/KG WEEK 6, THEN EVERY 8 WEEKS
     Route: 042
     Dates: start: 20210705
  5. INFLECTRA [Suspect]
     Active Substance: INFLIXIMAB-DYYB
     Dosage: 10MG/KG WEEK 0 AND 2, THEN 5MG/KG WEEK 6, THEN EVERY 8 WEEKS
     Route: 042
     Dates: start: 20210705
  6. INFLECTRA [Suspect]
     Active Substance: INFLIXIMAB-DYYB
     Dosage: 10MG/KG WEEK 0 AND 2, THEN 5MG/KG WEEK 6, THEN EVERY 8 WEEKS
     Route: 042
     Dates: start: 20210827
  7. INFLECTRA [Suspect]
     Active Substance: INFLIXIMAB-DYYB
     Dosage: 10 MG/KG, 1 DF, 10MG/KG WEEK 0 AND 2, THEN 5MG/KG WEEK 6, THEN EVERY 8 WEEKS
     Route: 042
     Dates: start: 20220211
  8. SOLU-MEDROL [Concomitant]
     Active Substance: METHYLPREDNISOLONE SODIUM SUCCINATE
     Dosage: DOSAGE NOT AVAILABLE
     Route: 065
     Dates: start: 201909
  9. PREDNISONE [Concomitant]
     Active Substance: PREDNISONE
     Dosage: 1 DF DOSAGE NOT AVAILABLE
     Route: 065
     Dates: start: 201909
  10. COVID-19 VACCINE [Concomitant]
     Indication: COVID-19 immunisation
     Dosage: DOSE 2, SINGLE
     Dates: start: 20210628, end: 20210628
  11. COVID-19 VACCINE [Concomitant]
     Dosage: DOSE 1, SINGLE

REACTIONS (10)
  - Rectal haemorrhage [Not Recovered/Not Resolved]
  - Abdominal pain lower [Unknown]
  - Proctalgia [Unknown]
  - Fatigue [Unknown]
  - Rectal tenesmus [Unknown]
  - Condition aggravated [Recovered/Resolved]
  - Weight fluctuation [Unknown]
  - Gastrooesophageal reflux disease [Recovering/Resolving]
  - COVID-19 [Recovered/Resolved]
  - Off label use [Unknown]

NARRATIVE: CASE EVENT DATE: 20190919
